FAERS Safety Report 5566999-5 (Version None)
Quarter: 2007Q4

REPORT INFORMATION
  Report Type: 
  Country: None (occurrence: None)
  Receive Date: 20071218
  Receipt Date: 20071218
  Transmission Date: 20080405
  Serious: No
  Sender: FDA-Public Use
  Company Number: None

PATIENT
  Age: 10 Year
  Sex: Male
  Weight: 35.3806 kg

DRUGS (7)
  1. ADDERALL 10 [Suspect]
     Dosage: 10 MG PO
     Route: 048
  2. ALBUTEROL [Suspect]
     Dosage: 2 P Q 2 HRS PRN INH
     Route: 055
  3. SINGULAIR [Concomitant]
  4. RISPERDAL [Concomitant]
  5. CLONIDINE [Concomitant]
  6. FLUOXETINE [Concomitant]
  7. VITAMIN CAP [Concomitant]

REACTIONS (1)
  - TACHYCARDIA [None]
